FAERS Safety Report 12723179 (Version 1)
Quarter: 2016Q3

REPORT INFORMATION
  Report Type: Report from Study
  Country: US (occurrence: US)
  Receive Date: 20160908
  Receipt Date: 20160908
  Transmission Date: 20161109
  Serious: Yes (Other)
  Sender: FDA-Public Use
  Company Number: US-AMGEN-USASP2016115659

PATIENT
  Age: 74 Year
  Sex: Female

DRUGS (1)
  1. PROLIA [Suspect]
     Active Substance: DENOSUMAB
     Indication: OSTEOPOROSIS POSTMENOPAUSAL
     Dosage: UNK UNK, UNK
     Route: 065

REACTIONS (5)
  - Blood pressure abnormal [Unknown]
  - Impaired healing [Unknown]
  - Peripheral venous disease [Unknown]
  - Limb injury [Recovered/Resolved]
  - Osteoporosis [Unknown]

NARRATIVE: CASE EVENT DATE: 20160229
